FAERS Safety Report 9625713 (Version 1)
Quarter: 2013Q4

REPORT INFORMATION
  Report Type: Report from Study
  Country: US (occurrence: US)
  Receive Date: 20131016
  Receipt Date: 20131016
  Transmission Date: 20140711
  Serious: No
  Sender: FDA-Public Use
  Company Number: US-JNJFOC-20131007765

PATIENT
  Sex: Female

DRUGS (4)
  1. TAPENTADOL HYDROCHLORIDE [Suspect]
     Indication: COMPLETED SUICIDE
     Route: 065
  2. TAPENTADOL HYDROCHLORIDE [Suspect]
     Indication: WITHDRAWAL SYNDROME
     Route: 065
  3. TAPENTADOL HYDROCHLORIDE [Suspect]
     Indication: INTENTIONAL DRUG MISUSE
     Route: 065
  4. TAPENTADOL HYDROCHLORIDE [Suspect]
     Indication: DRUG ABUSE
     Route: 065

REACTIONS (3)
  - Toxicity to various agents [Unknown]
  - Overdose [Unknown]
  - Exposure during pregnancy [Unknown]
